FAERS Safety Report 8417199 (Version 2)
Quarter: 2017Q3

REPORT INFORMATION
  Report Type: Spontaneous
  Country: AU (occurrence: AU)
  Receive Date: 20120220
  Receipt Date: 20170919
  Transmission Date: 20171128
  Serious: Yes (Other)
  Sender: FDA-Public Use
  Company Number: AU-ASTRAZENECA-2012SE09447

PATIENT
  Age: 2 Year

DRUGS (1)
  1. ATACAND [Suspect]
     Active Substance: CANDESARTAN CILEXETIL
     Route: 064

REACTIONS (3)
  - Developmental delay [Unknown]
  - Renal impairment [Unknown]
  - Speech disorder [Unknown]
